FAERS Safety Report 11414349 (Version 1)
Quarter: 2015Q3

REPORT INFORMATION
  Report Type: Spontaneous
  Country: IT (occurrence: IT)
  Receive Date: 20150824
  Receipt Date: 20150824
  Transmission Date: 20151125
  Serious: Yes (Other)
  Sender: FDA-Public Use
  Company Number: IT-GILEAD-2015-0168547

PATIENT
  Age: 87 Year
  Sex: Male

DRUGS (1)
  1. HARVONI [Suspect]
     Active Substance: LEDIPASVIR\SOFOSBUVIR
     Indication: CHRONIC HEPATITIS C
     Dosage: 1 DF, QD
     Route: 048
     Dates: start: 20150713

REACTIONS (4)
  - Blood triglycerides increased [Unknown]
  - Renal failure [Unknown]
  - Insomnia [Unknown]
  - Dysuria [Unknown]

NARRATIVE: CASE EVENT DATE: 20150803
